FAERS Safety Report 15351621 (Version 1)
Quarter: 2018Q3

REPORT INFORMATION
  Report Type: Report from Study
  Country: CA (occurrence: CA)
  Receive Date: 20180905
  Receipt Date: 20180905
  Transmission Date: 20181010
  Serious: Yes (Hospitalization, Other)
  Sender: FDA-Public Use
  Company Number: CA-ROCHE-1252192

PATIENT
  Age: 76 Year
  Sex: Male
  Weight: 84 kg

DRUGS (20)
  1. METHOTREXATE. [Suspect]
     Active Substance: METHOTREXATE
     Indication: RHEUMATOID ARTHRITIS
     Route: 065
  2. ACETAMINOPHEN. [Concomitant]
     Active Substance: ACETAMINOPHEN
     Route: 048
  3. ACTEMRA [Suspect]
     Active Substance: TOCILIZUMAB
     Indication: RHEUMATOID ARTHRITIS
     Route: 042
     Dates: start: 2010
  4. ACTEMRA [Suspect]
     Active Substance: TOCILIZUMAB
     Route: 042
     Dates: start: 20130523, end: 20140718
  5. ATORVASTATIN [Concomitant]
     Active Substance: ATORVASTATIN
  6. FOLIC ACID. [Concomitant]
     Active Substance: FOLIC ACID
  7. ACTEMRA [Suspect]
     Active Substance: TOCILIZUMAB
     Dosage: 1ST RPAP DOSE
     Route: 042
     Dates: start: 20120719
  8. RITUXAN [Suspect]
     Active Substance: RITUXIMAB
     Indication: RHEUMATOID ARTHRITIS
     Route: 042
     Dates: start: 20180728
  9. LISINOPRIL. [Concomitant]
     Active Substance: LISINOPRIL
  10. IMODIUM [Concomitant]
     Active Substance: LOPERAMIDE HYDROCHLORIDE
     Dosage: PRN
     Route: 065
  11. REMICADE [Suspect]
     Active Substance: INFLIXIMAB
     Indication: RHEUMATOID ARTHRITIS
     Route: 065
     Dates: start: 20140306, end: 201408
  12. TYLENOL [Concomitant]
     Active Substance: ACETAMINOPHEN
  13. DIPHENHYDRAMINE. [Concomitant]
     Active Substance: DIPHENHYDRAMINE
     Route: 065
  14. METHYLPREDNISOLONE. [Concomitant]
     Active Substance: METHYLPREDNISOLONE
  15. ACTEMRA [Suspect]
     Active Substance: TOCILIZUMAB
     Route: 042
     Dates: end: 2014
  16. MONOCOR [Concomitant]
     Active Substance: BISOPROLOL FUMARATE
  17. AMLODIPINE [Concomitant]
     Active Substance: AMLODIPINE BESYLATE
  18. PROSCAR [Concomitant]
     Active Substance: FINASTERIDE
  19. VITAMIN C [Concomitant]
     Active Substance: ASCORBIC ACID
  20. ASA [Concomitant]
     Active Substance: ASPIRIN
     Route: 065

REACTIONS (20)
  - Haematocrit decreased [Unknown]
  - Monocyte count decreased [Unknown]
  - Pleural effusion [Unknown]
  - Haemoglobin decreased [Unknown]
  - Red blood cell count decreased [Unknown]
  - Platelet count decreased [Unknown]
  - Swollen joint count [Unknown]
  - White blood cell count abnormal [Unknown]
  - Blood glucose decreased [Unknown]
  - Neutropenia [Not Recovered/Not Resolved]
  - Lung infection [Unknown]
  - White blood cell count decreased [Unknown]
  - C-reactive protein [Unknown]
  - Neutrophil count decreased [Not Recovered/Not Resolved]
  - Rheumatoid factor positive [Unknown]
  - Red blood cell sedimentation rate [Unknown]
  - Rheumatoid arthritis [Unknown]
  - Arthralgia [Not Recovered/Not Resolved]
  - Ill-defined disorder [Unknown]
  - Blood alkaline phosphatase decreased [Unknown]

NARRATIVE: CASE EVENT DATE: 2013
